FAERS Safety Report 6264477-1 (Version None)
Quarter: 2009Q3

REPORT INFORMATION
  Report Type: 
  Country: None (occurrence: None)
  Receive Date: 20090710
  Receipt Date: 20090629
  Transmission Date: 20100115
  Serious: Yes (Hospitalization, Other)
  Sender: FDA-Public Use
  Company Number: US-JNJFOC-20090607985

PATIENT
  Sex: Female
  Weight: 43.2 kg

DRUGS (4)
  1. REMICADE [Suspect]
     Indication: COLITIS ULCERATIVE
     Route: 042
  2. 5-AMINOSALICYLIC ACID [Concomitant]
     Route: 048
  3. MERCAPTOPURINE [Concomitant]
  4. CORTICOSTEROID [Concomitant]
     Indication: COLITIS ULCERATIVE

REACTIONS (3)
  - COLITIS ULCERATIVE [None]
  - DRUG INEFFECTIVE [None]
  - INTESTINAL OBSTRUCTION [None]
